FAERS Safety Report 25708802 (Version 3)
Quarter: 2025Q3

REPORT INFORMATION
  Report Type: Spontaneous
  Country: US (occurrence: US)
  Receive Date: 20250821
  Receipt Date: 20250829
  Transmission Date: 20251020
  Serious: Yes (Other)
  Sender: BAXTER
  Company Number: US-BAXTER-2025BAX019815

PATIENT
  Age: 45 Year
  Sex: Male
  Weight: 120 kg

DRUGS (11)
  1. MYXREDLIN [Suspect]
     Active Substance: INSULIN HUMAN
     Indication: Hyperglycaemia
     Route: 041
     Dates: start: 20250812, end: 20250812
  2. MYXREDLIN [Suspect]
     Active Substance: INSULIN HUMAN
     Route: 041
     Dates: start: 20250812, end: 20250812
  3. MYXREDLIN [Suspect]
     Active Substance: INSULIN HUMAN
     Route: 041
     Dates: start: 20250812, end: 20250812
  4. MYXREDLIN [Suspect]
     Active Substance: INSULIN HUMAN
     Route: 041
     Dates: start: 20250812, end: 20250812
  5. MYXREDLIN [Suspect]
     Active Substance: INSULIN HUMAN
     Route: 041
     Dates: start: 20250812, end: 20250812
  6. MYXREDLIN [Suspect]
     Active Substance: INSULIN HUMAN
     Route: 041
     Dates: start: 20250812, end: 20250812
  7. MYXREDLIN [Suspect]
     Active Substance: INSULIN HUMAN
     Route: 041
     Dates: start: 20250812, end: 20250812
  8. MYXREDLIN [Suspect]
     Active Substance: INSULIN HUMAN
     Route: 041
     Dates: start: 20250812, end: 20250812
  9. MYXREDLIN [Suspect]
     Active Substance: INSULIN HUMAN
     Route: 041
     Dates: start: 20250812
  10. MYXREDLIN [Suspect]
     Active Substance: INSULIN HUMAN
     Route: 041
     Dates: start: 20250812
  11. MYXREDLIN [Suspect]
     Active Substance: INSULIN HUMAN
     Route: 041
     Dates: start: 20250812

REACTIONS (1)
  - Drug ineffective [Recovered/Resolved]

NARRATIVE: CASE EVENT DATE: 20250812
